FAERS Safety Report 20612802 (Version 1)
Quarter: 2022Q1

REPORT INFORMATION
  Report Type: Spontaneous
  Country: DE (occurrence: DE)
  Receive Date: 20220318
  Receipt Date: 20220318
  Transmission Date: 20220423
  Serious: Yes (Other)
  Sender: FDA-Public Use
  Company Number: DE-009507513-2203DEU004674

PATIENT
  Age: 53 Year
  Sex: Male

DRUGS (2)
  1. KEYTRUDA [Suspect]
     Active Substance: PEMBROLIZUMAB
     Indication: Oesophageal carcinoma
     Dosage: FIRST DOSE
     Route: 042
     Dates: start: 202201, end: 202201
  2. KEYTRUDA [Suspect]
     Active Substance: PEMBROLIZUMAB
     Dosage: SECOND DOSE
     Route: 042
     Dates: start: 20220307, end: 20220307

REACTIONS (14)
  - Cerebrovascular accident [Not Recovered/Not Resolved]
  - Refeeding syndrome [Unknown]
  - General physical health deterioration [Unknown]
  - Parenteral nutrition [Unknown]
  - Sleep disorder [Unknown]
  - Restlessness [Unknown]
  - Anxiety [Unknown]
  - Dysphagia [Unknown]
  - Dyspepsia [Unknown]
  - Nausea [Unknown]
  - Constipation [Unknown]
  - Pain [Unknown]
  - Dyspnoea [Unknown]
  - Pyrexia [Unknown]

NARRATIVE: CASE EVENT DATE: 20220101
